FAERS Safety Report 14369783 (Version 6)
Quarter: 2018Q4

REPORT INFORMATION
  Report Type: Spontaneous
  Country: CA (occurrence: CA)
  Receive Date: 20180110
  Receipt Date: 20181227
  Transmission Date: 20190204
  Serious: Yes (Other)
  Sender: FDA-Public Use
  Company Number: CA-ORION CORPORATION ORION PHARMA-TREX2017-3769

PATIENT
  Age: 44 Year
  Sex: Female

DRUGS (5)
  1. ADVIL [Concomitant]
     Active Substance: IBUPROFEN
     Route: 065
  2. XELJANZ [Suspect]
     Active Substance: TOFACITINIB CITRATE
     Indication: RHEUMATOID ARTHRITIS
     Route: 048
     Dates: start: 20161223, end: 201811
  3. METHOTREXATE (TRADE NAME UNKNOWN) [Suspect]
     Active Substance: METHOTREXATE
     Indication: RHEUMATOID ARTHRITIS
     Route: 048
     Dates: start: 201603
  4. MORPHINE [Concomitant]
     Active Substance: MORPHINE
     Route: 065
  5. CELEBREX [Concomitant]
     Active Substance: CELECOXIB
     Route: 065

REACTIONS (18)
  - Product dose omission [Unknown]
  - Pain in extremity [Unknown]
  - Acne [Recovering/Resolving]
  - Latent tuberculosis [Not Recovered/Not Resolved]
  - Joint effusion [Unknown]
  - Eye discharge [Unknown]
  - Laboratory test abnormal [Unknown]
  - Muscle rupture [Not Recovered/Not Resolved]
  - Foot deformity [Not Recovered/Not Resolved]
  - Bone pain [Unknown]
  - Muscle rigidity [Unknown]
  - Nasopharyngitis [Unknown]
  - Back disorder [Unknown]
  - Localised infection [Recovering/Resolving]
  - Back pain [Unknown]
  - Oropharyngeal pain [Unknown]
  - Rheumatoid arthritis [Not Recovered/Not Resolved]
  - Sepsis [Unknown]
